FAERS Safety Report 13339635 (Version 4)
Quarter: 2017Q2

REPORT INFORMATION
  Report Type: Report from Study
  Country: US (occurrence: US)
  Receive Date: 20170315
  Receipt Date: 20170619
  Transmission Date: 20170830
  Serious: Yes (Death, Hospitalization)
  Sender: FDA-Public Use
  Company Number: US-ACTELION-A-NJ2017-150956

PATIENT
  Age: 78 Year
  Sex: Female
  Weight: 68.93 kg

DRUGS (4)
  1. COUMADIN [Concomitant]
     Active Substance: WARFARIN SODIUM
  2. TYVASO [Concomitant]
     Active Substance: TREPROSTINIL
  3. REVATIO [Concomitant]
     Active Substance: SILDENAFIL CITRATE
  4. TRACLEER [Suspect]
     Active Substance: BOSENTAN
     Indication: PULMONARY ARTERIAL HYPERTENSION
     Dosage: 125 MG, BID
     Route: 048
     Dates: end: 20170512

REACTIONS (7)
  - Dizziness [Unknown]
  - Disease complication [Fatal]
  - Pulmonary arterial hypertension [Fatal]
  - Malaise [Unknown]
  - Cardiac disorder [Unknown]
  - Lung disorder [Unknown]
  - Syncope [Unknown]

NARRATIVE: CASE EVENT DATE: 20170512
